FAERS Safety Report 6042711-0 (Version None)
Quarter: 2009Q1

REPORT INFORMATION
  Report Type: 
  Country: None (occurrence: None)
  Receive Date: 20090119
  Receipt Date: 20090109
  Transmission Date: 20090719
  Serious: Yes (Other)
  Sender: FDA-Public Use
  Company Number: US-BAYER-200910682NA

PATIENT
  Sex: Female

DRUGS (1)
  1. MIRENA [Suspect]
     Indication: DRUG USE FOR UNKNOWN INDICATION
     Route: 015
     Dates: start: 20071101

REACTIONS (4)
  - AMENORRHOEA [None]
  - BLOOD GLUCOSE INCREASED [None]
  - DYSPAREUNIA [None]
  - IUCD COMPLICATION [None]
